FAERS Safety Report 24839216 (Version 1)
Quarter: 2025Q1

REPORT INFORMATION
  Report Type: Spontaneous
  Country: US (occurrence: US)
  Receive Date: 20250114
  Receipt Date: 20250114
  Transmission Date: 20250409
  Serious: No
  Sender: ELI LILLY AND COMPANY
  Company Number: US-ELI_LILLY_AND_COMPANY-US202501007897

PATIENT
  Age: 47 Year
  Sex: Male

DRUGS (2)
  1. HUMALOG [Suspect]
     Active Substance: INSULIN LISPRO
     Indication: Diabetes mellitus
     Dosage: 35 U, TID
     Route: 058
     Dates: start: 2022
  2. LANTUS [Concomitant]
     Active Substance: INSULIN GLARGINE
     Indication: Diabetes mellitus
     Dosage: 52 U, DAILY
     Dates: start: 2022

REACTIONS (1)
  - Hand fracture [Recovering/Resolving]

NARRATIVE: CASE EVENT DATE: 20241210
